APPROVED DRUG PRODUCT: DOFETILIDE
Active Ingredient: DOFETILIDE
Strength: 0.5MG
Dosage Form/Route: CAPSULE;ORAL
Application: A208625 | Product #003 | TE Code: AB
Applicant: BIONPHARMA INC
Approved: Apr 10, 2018 | RLD: No | RS: No | Type: RX